FAERS Safety Report 4808165-4 (Version None)
Quarter: 2005Q4

REPORT INFORMATION
  Report Type: 
  Country: None (occurrence: None)
  Receive Date: 20051020
  Receipt Date: 20051011
  Transmission Date: 20060501
  Serious: Yes (Other)
  Sender: FDA-Public Use
  Company Number: BR-2005-019651

PATIENT
  Age: 16 Year
  Sex: Female

DRUGS (2)
  1. YASMIN [Suspect]
     Indication: POLYCYSTIC OVARIES
     Dosage: 1 TAB(S), ORAL
     Route: 048
     Dates: start: 20050801, end: 20050901
  2. FERROUS SULFATE (FERROUS SULFATE0 [Concomitant]

REACTIONS (9)
  - ABDOMINAL PAIN UPPER [None]
  - BREAST DISCHARGE [None]
  - DIZZINESS [None]
  - EPISTAXIS [None]
  - HAEMOGLOBIN DECREASED [None]
  - HEPATITIS B [None]
  - HYPERSENSITIVITY [None]
  - SWELLING [None]
  - VOMITING [None]
